FAERS Safety Report 9790604 (Version 1)
Quarter: 2013Q4

REPORT INFORMATION
  Report Type: Spontaneous
  Country: FR (occurrence: FR)
  Receive Date: 20131231
  Receipt Date: 20131231
  Transmission Date: 20140711
  Serious: Yes (Other)
  Sender: FDA-Public Use
  Company Number: FR-B.I. PHARMACEUTICALS,INC./RIDGEFIELD-2013-BI-43932FF

PATIENT
  Age: 68 Year
  Sex: Male

DRUGS (6)
  1. PRADAXA [Suspect]
     Indication: ATRIAL FIBRILLATION
     Dosage: 300 MG
     Route: 048
     Dates: start: 20130301, end: 20130913
  2. LASILIX [Concomitant]
  3. BISOPROLOL [Concomitant]
     Dosage: 10 MG
  4. CORDARONE [Concomitant]
     Dosage: 2 ANZ
  5. FENOFIBRATE [Concomitant]
  6. SEVIKAR [Concomitant]

REACTIONS (1)
  - Renal failure [Not Recovered/Not Resolved]
